FAERS Safety Report 7965594-8 (Version None)
Quarter: 2011Q4

REPORT INFORMATION
  Report Type: 
  Country: None (occurrence: None)
  Receive Date: 20111208
  Receipt Date: 20111130
  Transmission Date: 20120403
  Serious: Yes (Congenital Anomaly, Other)
  Sender: FDA-Public Use
  Company Number: US-PFIZER INC-2011293288

PATIENT
  Sex: Female

DRUGS (7)
  1. MIDOL EXTENDED RELIEF CAPLETS [Concomitant]
     Dosage: UNK
     Route: 064
  2. ZOLOFT [Suspect]
     Dosage: 50 MG, AT BEDTIME
     Route: 064
     Dates: start: 20021201
  3. LORCET-HD [Concomitant]
     Indication: PAIN
     Dosage: 10 MG, AT NIGHT TIME
     Route: 064
     Dates: start: 20050104
  4. ZOLOFT [Suspect]
     Indication: DEPRESSION
     Dosage: 25 MG, AT BEDTIME FOR FIRST WEEK
     Route: 064
     Dates: start: 20021125, end: 20021201
  5. ACETAMINOPHEN [Concomitant]
     Dosage: UNK
     Route: 064
  6. ZELNORM [Concomitant]
     Indication: IRRITABLE BOWEL SYNDROME
     Dosage: UNK
     Route: 064
  7. TYLENOL PM [Concomitant]
     Dosage: UNK
     Route: 064

REACTIONS (8)
  - RIGHT ATRIAL DILATATION [None]
  - DILATATION VENTRICULAR [None]
  - DRUG ERUPTION [None]
  - MATERNAL EXPOSURE TIMING UNSPECIFIED [None]
  - ATRIAL SEPTAL DEFECT [None]
  - OTITIS MEDIA ACUTE [None]
  - CARDIAC MURMUR [None]
  - PREMATURE BABY [None]
